FAERS Safety Report 13814102 (Version 1)
Quarter: 2017Q3

REPORT INFORMATION
  Report Type: Other
  Country: GB (occurrence: GB)
  Receive Date: 20170731
  Receipt Date: 20170731
  Transmission Date: 20171127
  Serious: Yes (Hospitalization)
  Sender: FDA-Public Use
  Company Number: GB-HETERO LABS LTD-2023945

PATIENT
  Age: 87 Year
  Sex: Male

DRUGS (3)
  1. LINEZOLID. [Suspect]
     Active Substance: LINEZOLID
     Indication: DEVICE RELATED INFECTION
     Route: 048
  2. DAPTOMYCIN. [Suspect]
     Active Substance: DAPTOMYCIN
     Route: 042
  3. SODIUM CHLORIDE. [Suspect]
     Active Substance: SODIUM CHLORIDE
     Route: 042

REACTIONS (2)
  - Drug eruption [Recovered/Resolved]
  - Eosinophilic pneumonia [Recovered/Resolved]
